FAERS Safety Report 21047204 (Version 1)
Quarter: 2022Q3

REPORT INFORMATION
  Report Type: Spontaneous
  Country: US (occurrence: None)
  Receive Date: 20220705
  Receipt Date: 20220705
  Transmission Date: 20221026
  Serious: Yes (unspecified)
  Sender: FDA-Public Use
  Company Number: None

PATIENT
  Age: 47 Year
  Sex: Male
  Weight: 60.75 kg

DRUGS (3)
  1. NEUTROGENA BEACH DEFENSE WATER AND SUN PROTECTION SUNSCREEN BROAD SPEC [Suspect]
     Active Substance: AVOBENZONE\HOMOSALATE\OCTISALATE\OCTOCRYLENE
     Indication: Prophylaxis against solar radiation
     Dosage: OTHER QUANTITY : 1 SPRAY(S);?OTHER FREQUENCY : EVERY 80 MINUTES;?
     Route: 061
     Dates: start: 20220617, end: 20220619
  2. IBUPROFEN [Concomitant]
     Active Substance: IBUPROFEN
  3. TYLENOL [Concomitant]

REACTIONS (2)
  - Second degree chemical burn of skin [None]
  - Treatment failure [None]

NARRATIVE: CASE EVENT DATE: 20220617
